FAERS Safety Report 6076471-4 (Version None)
Quarter: 2009Q1

REPORT INFORMATION
  Report Type: 
  Country: None (occurrence: None)
  Receive Date: 20090213
  Receipt Date: 20090211
  Transmission Date: 20090719
  Serious: Yes (Other)
  Sender: FDA-Public Use
  Company Number: BR-JNJFOC-20090203255

PATIENT
  Age: 15 Year
  Sex: Male
  Weight: 27.22 kg

DRUGS (2)
  1. CONCERTA [Suspect]
     Indication: ATTENTION DEFICIT/HYPERACTIVITY DISORDER
     Dosage: SINCE 3 YEARS AGO
  2. RISPERIDONE [Suspect]
     Indication: ABNORMAL BEHAVIOUR
     Dosage: SINCE 3 YEARS AGO
     Route: 065

REACTIONS (3)
  - BLOOD CHOLESTEROL INCREASED [None]
  - DRUG INEFFECTIVE [None]
  - HYPOTHYROIDISM [None]
